FAERS Safety Report 6308315-7 (Version None)
Quarter: 2009Q3

REPORT INFORMATION
  Report Type: 
  Country: None (occurrence: None)
  Receive Date: 20090813
  Receipt Date: 20090807
  Transmission Date: 20100115
  Serious: No
  Sender: FDA-Public Use
  Company Number: US-B.I. PHARMACEUTICALS,INC./RIDGEFIELD-2009-BP-09435BP

PATIENT
  Sex: Female

DRUGS (3)
  1. SPIRIVA [Suspect]
     Indication: LUNG DISORDER
     Dosage: 18 MCG
     Route: 055
     Dates: start: 20090131
  2. PROAIR HFA [Suspect]
     Indication: LUNG DISORDER
     Route: 055
  3. OPITV EYEDROPS [Concomitant]
     Indication: DRY EYE
     Route: 031

REACTIONS (4)
  - DRY MOUTH [None]
  - DYSGEUSIA [None]
  - OROPHARYNGEAL BLISTERING [None]
  - VISUAL IMPAIRMENT [None]
